FAERS Safety Report 9482111 (Version 1)
Quarter: 2013Q3

REPORT INFORMATION
  Report Type: Report from Study
  Country: US (occurrence: US)
  Receive Date: 20130828
  Receipt Date: 20130828
  Transmission Date: 20140515
  Serious: No
  Sender: FDA-Public Use
  Company Number: US-JNJFOC-20130808597

PATIENT
  Sex: Female

DRUGS (1)
  1. DURAGESIC [Suspect]
     Indication: PRODUCT USED FOR UNKNOWN INDICATION
     Route: 062

REACTIONS (6)
  - Drug tolerance increased [Unknown]
  - Drug dose omission [Unknown]
  - Synovial cyst [Recovered/Resolved]
  - Influenza [Recovered/Resolved]
  - Product quality issue [Unknown]
  - Drug ineffective [Unknown]
